FAERS Safety Report 5364012-6 (Version None)
Quarter: 2007Q2

REPORT INFORMATION
  Report Type: 
  Country: None (occurrence: None)
  Receive Date: 20070620
  Receipt Date: 20070612
  Transmission Date: 20071010
  Serious: Yes (Other)
  Sender: FDA-Public Use
  Company Number: US-ELI_LILLY_AND_COMPANY-US200706001050

PATIENT
  Age: 56 Year
  Sex: Male

DRUGS (4)
  1. CYMBALTA [Suspect]
     Dosage: 60 MG, EACH MORNING
     Dates: start: 20060721, end: 20070429
  2. CYMBALTA [Interacting]
     Dosage: 30 MG, EACH EVENING
     Dates: start: 20060721, end: 20070429
  3. VYTORIN [Concomitant]
  4. COUMADIN [Concomitant]
     Dosage: UNK MG, UNK

REACTIONS (2)
  - DRUG INTERACTION [None]
  - INTERNATIONAL NORMALISED RATIO INCREASED [None]
